FAERS Safety Report 4476702-8 (Version None)
Quarter: 2004Q4

REPORT INFORMATION
  Report Type: 
  Country: None (occurrence: None)
  Receive Date: 20041013
  Receipt Date: 20041001
  Transmission Date: 20050328
  Serious: Yes (Other)
  Sender: FDA-Public Use
  Company Number: 163-20785-04100123

PATIENT
  Sex: 0

DRUGS (2)
  1. THALOMID [Suspect]
     Indication: GLIOBLASTOMA MULTIFORME
     Dosage: 200MG QD W/ TITRATION
  2. RADIATION THERAPY [Suspect]
     Indication: GLIOBLASTOMA MULTIFORME
     Dosage: TOTAL DOSE 60GY OVER 6 WEEKS

REACTIONS (13)
  - ALOPECIA [None]
  - ASTHENIA [None]
  - CONSTIPATION [None]
  - DRY MOUTH [None]
  - DYSGEUSIA [None]
  - FATIGUE [None]
  - HAEMOGLOBIN ABNORMAL [None]
  - LETHARGY [None]
  - MALAISE [None]
  - NAIL DISORDER [None]
  - PERIPHERAL SENSORY NEUROPATHY [None]
  - RECALL PHENOMENON [None]
  - WEIGHT DECREASED [None]
